FAERS Safety Report 9239030 (Version 1)
Quarter: 2013Q2

REPORT INFORMATION
  Report Type: Spontaneous
  Country: US (occurrence: US)
  Receive Date: 20130418
  Receipt Date: 20130418
  Transmission Date: 20140414
  Serious: No
  Sender: FDA-Public Use
  Company Number: US-COVIDIEN/TYCO HEALTHCARE/MALLINCKRODT-T201300930

PATIENT
  Sex: Male

DRUGS (2)
  1. METHADONE [Suspect]
     Indication: PAIN
     Dosage: 20 MG, UNK
  2. OXYCONTIN [Concomitant]
     Indication: PAIN
     Dosage: UNK

REACTIONS (1)
  - Somnolence [Recovered/Resolved]
